FAERS Safety Report 4474324-6 (Version None)
Quarter: 2004Q4

REPORT INFORMATION
  Report Type: 
  Country: None (occurrence: None)
  Receive Date: 20041012
  Receipt Date: 20040930
  Transmission Date: 20050328
  Serious: Yes (Hospitalization)
  Sender: FDA-Public Use
  Company Number: 2004236697GB

PATIENT
  Age: 77 Year
  Sex: Female

DRUGS (7)
  1. CABERGOLINE [Suspect]
     Dosage: 2 MG, HS, ORAL
     Route: 048
     Dates: start: 20031201
  2. LEBOCAR (LEVODOPA, CARBIDOPA) TABLET [Suspect]
     Indication: PARKINSONISM
     Dosage: 100/25 2 TABLETSX4 TIMES/DAY
     Dates: start: 20031201
  3. MADOPAR (BENSERAZIDE HYDROCHLORIDE) [Suspect]
     Indication: PARKINSONISM
     Dosage: 187.5 MG/DAY, ORAL
     Route: 048
  4. CITALOPRAM [Concomitant]
  5. ATROPINE [Concomitant]
  6. QUETIAPINE (QUETIAPINE) [Concomitant]
  7. GABAPENTIN [Concomitant]

REACTIONS (3)
  - BLOOD PRESSURE DECREASED [None]
  - CONFUSIONAL STATE [None]
  - FALL [None]
